FAERS Safety Report 9637759 (Version 6)
Quarter: 2014Q2

REPORT INFORMATION
  Report Type: Spontaneous
  Country: US (occurrence: US)
  Receive Date: 20131022
  Receipt Date: 20140416
  Transmission Date: 20141212
  Serious: Yes (Hospitalization, Other)
  Sender: FDA-Public Use
  Company Number: US-VERTEX PHARMACEUTICALS INC-2013-010528

PATIENT
  Age: 12 Year
  Sex: Female

DRUGS (11)
  1. KALYDECO [Suspect]
     Indication: CYSTIC FIBROSIS
     Dosage: 150 MG, BID
     Route: 048
     Dates: start: 20130418, end: 20130930
  2. KALYDECO [Suspect]
     Dosage: 150 MG, BID
     Route: 048
     Dates: start: 201310
  3. KALYDECO [Suspect]
     Dosage: 150 MG, QD
     Route: 048
  4. KALYDECO [Suspect]
     Dosage: 75 MG, BID
     Route: 048
  5. BREATHING VEST [Suspect]
     Dosage: UNK, BID
  6. VITAMIN D3 [Concomitant]
  7. CREON [Concomitant]
  8. MULTIVITAMIN [Concomitant]
  9. ALBUTEROL [Concomitant]
  10. PULMOZYME [Concomitant]
  11. HYPERTONIC SALINE SOLUTION [Concomitant]

REACTIONS (8)
  - Swelling [Recovered/Resolved]
  - Swelling face [Recovered/Resolved]
  - Weight increased [Recovered/Resolved]
  - Pseudomonas infection [Unknown]
  - Infective pulmonary exacerbation of cystic fibrosis [Recovered/Resolved]
  - Rash [Not Recovered/Not Resolved]
  - Drug dose omission [Unknown]
  - Gastrointestinal disorder [Recovered/Resolved]
